FAERS Safety Report 17863953 (Version 1)
Quarter: 2020Q2

REPORT INFORMATION
  Report Type: Spontaneous
  Country: CA (occurrence: CA)
  Receive Date: 20200605
  Receipt Date: 20200605
  Transmission Date: 20200714
  Serious: Yes (Hospitalization, Other)
  Sender: FDA-Public Use
  Company Number: CA-APOTEX-2020AP011515

PATIENT
  Age: 52 Year
  Sex: Male

DRUGS (1)
  1. FENTANYL. [Suspect]
     Active Substance: FENTANYL
     Indication: PRODUCT USED FOR UNKNOWN INDICATION
     Dosage: UNK
     Route: 065

REACTIONS (12)
  - Leukoencephalopathy [Recovering/Resolving]
  - Disorientation [Unknown]
  - Hypoxia [Unknown]
  - Loss of consciousness [Recovered/Resolved]
  - Cerebral ischaemia [Unknown]
  - Amnestic disorder [Not Recovered/Not Resolved]
  - Drug screen positive [Unknown]
  - Delirium [Recovered/Resolved]
  - Hypoventilation [Unknown]
  - Toxicity to various agents [Unknown]
  - Attention deficit hyperactivity disorder [Unknown]
  - Overdose [Unknown]
